FAERS Safety Report 25324210 (Version 1)
Quarter: 2025Q2

REPORT INFORMATION
  Report Type: Spontaneous
  Country: US (occurrence: US)
  Receive Date: 20250516
  Receipt Date: 20250516
  Transmission Date: 20250716
  Serious: No
  Sender: NOVEN
  Company Number: US-NOVEN PHARMACEUTICALS, INC.-2024-NOV-US000565

PATIENT
  Age: 74 Year
  Sex: Female

DRUGS (2)
  1. DAYTRANA [Suspect]
     Active Substance: METHYLPHENIDATE
     Indication: COVID-19
     Route: 062
     Dates: start: 2024, end: 2024
  2. DAYTRANA [Suspect]
     Active Substance: METHYLPHENIDATE
     Indication: Off label use

REACTIONS (3)
  - Application site hypersensitivity [Unknown]
  - Application site rash [Unknown]
  - Off label use [Recovered/Resolved]

NARRATIVE: CASE EVENT DATE: 20240101
